FAERS Safety Report 6983447-9 (Version None)
Quarter: 2010Q3

REPORT INFORMATION
  Report Type: 
  Country: None (occurrence: None)
  Receive Date: 20100914
  Receipt Date: 20100914
  Transmission Date: 20110219
  Serious: No
  Sender: FDA-Public Use
  Company Number: None

PATIENT
  Age: 63 Year
  Sex: Male
  Weight: 65 kg

DRUGS (1)
  1. MOXIFLOXACIN [Suspect]
     Dosage: 400 MG ONCE IV
     Route: 042
     Dates: start: 20100709, end: 20100907

REACTIONS (3)
  - INFUSION RELATED REACTION [None]
  - PHLEBITIS [None]
  - VASCULITIS [None]
